FAERS Safety Report 11182911 (Version 1)
Quarter: 2015Q2

REPORT INFORMATION
  Report Type: Spontaneous
  Country: US (occurrence: US)
  Receive Date: 20150611
  Receipt Date: 20150611
  Transmission Date: 20150821
  Serious: No
  Sender: FDA-Public Use
  Company Number: US-ASTRAZENECA-2015SE54255

PATIENT
  Age: 54 Year
  Sex: Male
  Weight: 152 kg

DRUGS (11)
  1. VITAMIN D [Concomitant]
     Active Substance: CHOLECALCIFEROL
  2. ANDROGEL [Suspect]
     Active Substance: TESTOSTERONE
     Dosage: 1.62 PERCENT, GEL, 90644
     Route: 061
     Dates: start: 201401, end: 201409
  3. ANDROGEL [Suspect]
     Active Substance: TESTOSTERONE
     Dosage: 4 PUMPS DAILY
     Route: 061
     Dates: start: 201503
  4. INSULIN [Concomitant]
     Active Substance: INSULIN NOS
  5. ONGLYZA [Suspect]
     Active Substance: SAXAGLIPTIN HYDROCHLORIDE
     Route: 048
     Dates: start: 201503
  6. ANDROGEL [Suspect]
     Active Substance: TESTOSTERONE
     Dosage: 4 PUMPS EVERY OTHER DAY
     Route: 061
     Dates: end: 201503
  7. POTASSIUM [Suspect]
     Active Substance: POTASSIUM
     Indication: DIABETES MELLITUS
     Route: 065
     Dates: start: 201503
  8. AMLODIPINE [Concomitant]
     Active Substance: AMLODIPINE BESYLATE
     Indication: HYPERTENSION
  9. METOPROLOL [Concomitant]
     Active Substance: METOPROLOL
     Indication: HYPERTENSION
  10. ANDROGEL [Suspect]
     Active Substance: TESTOSTERONE
     Dosage: 4 PUMPS DAILY
     Route: 061
     Dates: start: 201409, end: 201409
  11. ANDROGEL [Suspect]
     Active Substance: TESTOSTERONE
     Dosage: 4 PUMPS EVERY OTHER DAY
     Route: 061
     Dates: start: 201409

REACTIONS (6)
  - Blood testosterone decreased [Recovered/Resolved]
  - Drug dose omission [Recovered/Resolved]
  - Asthenia [Unknown]
  - Nail growth abnormal [Recovered/Resolved]
  - Hair growth abnormal [Recovered/Resolved]
  - Pollakiuria [Unknown]

NARRATIVE: CASE EVENT DATE: 201503
